FAERS Safety Report 6208174-7 (Version None)
Quarter: 2009Q2

REPORT INFORMATION
  Report Type: 
  Country: None (occurrence: None)
  Receive Date: 20090529
  Receipt Date: 20090519
  Transmission Date: 20091009
  Serious: Yes (Hospitalization)
  Sender: FDA-Public Use
  Company Number: DE-ROCHE-634945

PATIENT
  Sex: Female

DRUGS (2)
  1. XELODA [Suspect]
     Indication: RECTAL CANCER METASTATIC
     Route: 065
  2. AVASTIN [Suspect]
     Indication: RECTAL CANCER METASTATIC
     Route: 065

REACTIONS (3)
  - ABSCESS [None]
  - ANAL FISTULA [None]
  - IMPAIRED HEALING [None]
